FAERS Safety Report 10102140 (Version 1)
Quarter: 2014Q2

REPORT INFORMATION
  Report Type: Spontaneous
  Country: US (occurrence: None)
  Receive Date: 20140423
  Receipt Date: 20140423
  Transmission Date: 20141212
  Serious: Yes (Hospitalization)
  Sender: FDA-Public Use
  Company Number: None

PATIENT
  Age: 65 Year
  Sex: Male
  Weight: 178 kg

DRUGS (2)
  1. BENDAMUSTINE HYDROCHLORIDE [Suspect]
  2. RITUXIMAB [Suspect]

REACTIONS (3)
  - Pyrexia [None]
  - Sepsis [None]
  - Lobar pneumonia [None]
